FAERS Safety Report 15003063 (Version 2)
Quarter: 2018Q2

REPORT INFORMATION
  Report Type: Report from Study
  Country: ES (occurrence: ES)
  Receive Date: 20180612
  Receipt Date: 20180618
  Transmission Date: 20180711
  Serious: Yes (Life-Threatening, Hospitalization, Other)
  Sender: FDA-Public Use
  Company Number: ES-TEVA-2018-ES-906277

PATIENT
  Age: 48 Year
  Sex: Male

DRUGS (3)
  1. FORTECORTIN 1 MG COMPRIMIDOS , 30 COMPRIMIDOS [Interacting]
     Active Substance: DEXAMETHASONE
     Indication: PRODUCT USED FOR UNKNOWN INDICATION
     Dosage: 4 MILLIGRAM DAILY;
     Route: 048
     Dates: start: 20161021, end: 20161103
  2. IBUPROFEN. [Suspect]
     Active Substance: IBUPROFEN
     Indication: PAIN
     Dosage: 1.8 GRAM DAILY;
     Route: 048
     Dates: start: 20161014, end: 20161103
  3. NOLOTIL 575 MG CAPSULAS DURAS, 10 C?PSULAS [Interacting]
     Active Substance: METAMIZOLE MAGNESIUM
     Indication: PAIN
     Dosage: 6 GRAM DAILY;
     Route: 048
     Dates: start: 20161014, end: 20161103

REACTIONS (2)
  - Drug interaction [Unknown]
  - Upper gastrointestinal haemorrhage [Recovered/Resolved]

NARRATIVE: CASE EVENT DATE: 20161101
